FAERS Safety Report 8892252 (Version 1)
Quarter: 2012Q4

REPORT INFORMATION
  Report Type: Spontaneous
  Country: US (occurrence: None)
  Receive Date: 20121105
  Receipt Date: 20121105
  Transmission Date: 20130627
  Serious: Yes (Other)
  Sender: FDA-Public Use
  Company Number: None

PATIENT
  Sex: Female
  Weight: 48.54 kg

DRUGS (1)
  1. FORTEO [Suspect]
     Indication: OSTEOPOROSIS
     Dosage: once a day
     Route: 058
     Dates: start: 20120928, end: 20121012

REACTIONS (3)
  - Influenza like illness [None]
  - Nausea [None]
  - Bone pain [None]
